FAERS Safety Report 8050316-5 (Version None)
Quarter: 2011Q4

REPORT INFORMATION
  Report Type: 
  Country: None (occurrence: None)
  Receive Date: 20111212
  Receipt Date: 20111031
  Transmission Date: 20120403
  Serious: Yes (Hospitalization)
  Sender: FDA-Public Use
  Company Number: PHEH2011US08198

PATIENT
  Age: 29 Year
  Sex: Female
  Weight: 52 kg

DRUGS (6)
  1. GLATIRAMER ACETATE (GLATIRAMER ACETATE) [Concomitant]
  2. MODAFINIL [Concomitant]
  3. INTERFERON BETA-1A [Concomitant]
  4. CLONAZEPAM [Concomitant]
  5. INTERFERON BETA-1B [Suspect]
     Indication: MULTIPLE SCLEROSIS
     Dosage: SUBCUTANEOUS
     Route: 058
  6. LYRICA [Concomitant]

REACTIONS (1)
  - MULTIPLE SCLEROSIS [None]
